FAERS Safety Report 7284196-2 (Version None)
Quarter: 2011Q1

REPORT INFORMATION
  Report Type: 
  Country: None (occurrence: None)
  Receive Date: 20110127
  Receipt Date: 20110111
  Transmission Date: 20110831
  Serious: Yes (Disabling)
  Sender: FDA-Public Use
  Company Number: 2011P1003870

PATIENT
  Age: 73 Year
  Sex: Male
  Weight: 74.8435 kg

DRUGS (8)
  1. TRIAMCINOLONE [Concomitant]
  2. SALICYIC SHAMPOO [Concomitant]
  3. OINTMENT [Concomitant]
  4. CLOBETASOL PROPIONATE [Suspect]
     Indication: ERYTHRODERMIC PSORIASIS
     Dosage: 1 APPLICATION;BID TO PALMS OF HANDS AND SOLES OF FEET;TOP
     Route: 061
     Dates: start: 20100801, end: 20110104
  5. CLOBETASOL PROPIONATE [Suspect]
  6. FOSAMAX [Concomitant]
  7. HYDROCORTISONE [Concomitant]
  8. PROSCAR [Concomitant]

REACTIONS (2)
  - HYPERKERATOSIS [None]
  - MUSCULOSKELETAL STIFFNESS [None]
